FAERS Safety Report 8460026-8 (Version None)
Quarter: 2012Q2

REPORT INFORMATION
  Report Type: 
  Country: None (occurrence: None)
  Receive Date: 20120622
  Receipt Date: 20120612
  Transmission Date: 20120825
  Serious: Yes (Other)
  Sender: FDA-Public Use
  Company Number: CHPA2012IT012269

PATIENT
  Sex: Male

DRUGS (2)
  1. IBUPROFEN [Suspect]
     Dosage: UNK, UNK
  2. NIMESULIDE [Suspect]
     Dosage: UNK, UNK

REACTIONS (7)
  - GENERALISED ERYTHEMA [None]
  - DYSPHONIA [None]
  - THROAT TIGHTNESS [None]
  - LIP PRURITUS [None]
  - URTICARIA [None]
  - LIP OEDEMA [None]
  - RASH [None]
